FAERS Safety Report 6130467-2 (Version None)
Quarter: 2009Q1

REPORT INFORMATION
  Report Type: 
  Country: None (occurrence: None)
  Receive Date: 20090318
  Receipt Date: 20090304
  Transmission Date: 20090719
  Serious: Yes (Other)
  Sender: FDA-Public Use
  Company Number: THYM-1000934

PATIENT

DRUGS (1)
  1. THYMOGLOBULIN [Suspect]
     Indication: LIVER TRANSPLANT
     Dosage: INTRAVENOUS
     Route: 042

REACTIONS (4)
  - CHILLS [None]
  - OXYGEN SATURATION DECREASED [None]
  - PYREXIA [None]
  - TACHYCARDIA [None]
